FAERS Safety Report 14199887 (Version 2)
Quarter: 2017Q4

REPORT INFORMATION
  Report Type: Report from Study
  Country: US (occurrence: US)
  Receive Date: 20171117
  Receipt Date: 20171218
  Transmission Date: 20180321
  Serious: Yes (Other)
  Sender: FDA-Public Use
  Company Number: US-JNJFOC-20170821298

PATIENT
  Age: 80 Year
  Sex: Female

DRUGS (11)
  1. ATORVASTATIN [Concomitant]
     Active Substance: ATORVASTATIN
  2. PRILOSEC [Concomitant]
     Active Substance: OMEPRAZOLE MAGNESIUM
  3. VALSARTAN. [Concomitant]
     Active Substance: VALSARTAN
  4. IMBRUVICA [Suspect]
     Active Substance: IBRUTINIB
     Indication: CHRONIC LYMPHOCYTIC LEUKAEMIA
     Route: 048
     Dates: start: 20170731, end: 2017
  5. PLAVIX [Concomitant]
     Active Substance: CLOPIDOGREL BISULFATE
  6. LASIX [Concomitant]
     Active Substance: FUROSEMIDE
  7. COREG [Concomitant]
     Active Substance: CARVEDILOL
  8. ANTIVERT [Concomitant]
     Active Substance: MECLIZINE HYDROCHLORIDE
  9. IMBRUVICA [Suspect]
     Active Substance: IBRUTINIB
     Indication: CHRONIC LYMPHOCYTIC LEUKAEMIA
     Route: 048
     Dates: start: 20170719
  10. MULTIVITAMINS [Concomitant]
     Active Substance: VITAMINS
  11. IMDUR [Concomitant]
     Active Substance: ISOSORBIDE MONONITRATE

REACTIONS (9)
  - Appetite disorder [Unknown]
  - Paraesthesia [Not Recovered/Not Resolved]
  - Pain in extremity [Unknown]
  - Rash papular [Recovered/Resolved]
  - Disease progression [Unknown]
  - Fatigue [Unknown]
  - Pneumonia [Unknown]
  - Pulmonary haemorrhage [Not Recovered/Not Resolved]
  - Dysphagia [Unknown]

NARRATIVE: CASE EVENT DATE: 2017
